FAERS Safety Report 5493115-0 (Version None)
Quarter: 2007Q4

REPORT INFORMATION
  Report Type: 
  Country: None (occurrence: None)
  Receive Date: 20071019
  Receipt Date: 20071011
  Transmission Date: 20080405
  Serious: Yes (Other)
  Sender: FDA-Public Use
  Company Number: 2007SP020634

PATIENT
  Age: 31 Year
  Sex: Female

DRUGS (4)
  1. PEG-INTRON [Suspect]
     Indication: HEPATITIS C
     Dosage: SC
     Route: 058
     Dates: end: 20070101
  2. COPEGUS [Suspect]
     Indication: HEPATITIS C
     Dosage: PO
     Route: 048
     Dates: end: 20070101
  3. CORTISONE ACETATE [Suspect]
     Indication: FACE OEDEMA
  4. CORTISONE ACETATE [Suspect]
     Indication: URTICARIA

REACTIONS (6)
  - DEPRESSION [None]
  - FACE OEDEMA [None]
  - HEPATIC CIRRHOSIS [None]
  - HEPATITIS [None]
  - URTICARIA [None]
  - WEIGHT INCREASED [None]
